FAERS Safety Report 9887152 (Version 2)
Quarter: 2014Q1

REPORT INFORMATION
  Report Type: Spontaneous
  Country: US (occurrence: US)
  Receive Date: 20140211
  Receipt Date: 20140211
  Transmission Date: 20141002
  Serious: Yes (Hospitalization)
  Sender: FDA-Public Use
  Company Number: US-ROCHE-1335744

PATIENT
  Age: 66 Year
  Sex: Female
  Weight: 102.15 kg

DRUGS (7)
  1. XELODA [Suspect]
     Indication: COLON CANCER
     Dosage: 14 DAYS ON , 7 DAYS OFF, 3 TABLETS
     Route: 048
     Dates: start: 20140103
  2. ATENOLOL [Concomitant]
  3. FUROSEMIDE [Concomitant]
  4. METFORMIN HYDROCHLORIDE [Concomitant]
  5. ONDANSETRON [Concomitant]
  6. ASPIRIN [Concomitant]
  7. PREDNISONE [Concomitant]

REACTIONS (4)
  - Dehydration [Unknown]
  - Enteritis [Unknown]
  - Oncologic complication [Unknown]
  - Palmar-plantar erythrodysaesthesia syndrome [Not Recovered/Not Resolved]
